FAERS Safety Report 17420211 (Version 3)
Quarter: 2020Q1

REPORT INFORMATION
  Report Type: Spontaneous
  Country: JP (occurrence: JP)
  Receive Date: 20200214
  Receipt Date: 20200220
  Transmission Date: 20200409
  Serious: Yes (Hospitalization, Other)
  Sender: FDA-Public Use
  Company Number: JP-PFIZER INC-2020057542

PATIENT
  Age: 83 Year
  Sex: Female

DRUGS (2)
  1. CEFTRIAXONE SODIUM. [Suspect]
     Active Substance: CEFTRIAXONE SODIUM
     Indication: RENAL ABSCESS
     Dosage: 2 G, DAILY (STARTING ON DAY 22 OF THE ILLNESS)
     Dates: start: 2013, end: 2013
  2. CEFTRIAXONE SODIUM. [Suspect]
     Active Substance: CEFTRIAXONE SODIUM
     Dosage: 4 G, DAILY

REACTIONS (5)
  - Bile duct obstruction [Recovering/Resolving]
  - Pseudocholelithiasis [Recovering/Resolving]
  - Cholecystitis [Recovering/Resolving]
  - Cholangitis [Recovering/Resolving]
  - Bile duct stone [Recovering/Resolving]

NARRATIVE: CASE EVENT DATE: 2013
